FAERS Safety Report 8996745 (Version 1)
Quarter: 2012Q4

REPORT INFORMATION
  Report Type: Spontaneous
  Country: US (occurrence: None)
  Receive Date: 20121228
  Receipt Date: 20121228
  Transmission Date: 20130627
  Serious: Yes (Hospitalization)
  Sender: FDA-Public Use
  Company Number: None

PATIENT
  Sex: Female
  Weight: 59.88 kg

DRUGS (6)
  1. ALTAVERA [Suspect]
     Indication: BIRTH CONTROL
     Dosage: 1 pill once a day
     Dates: start: 20121007, end: 20121118
  2. SYNTHROID [Concomitant]
  3. SYNTHROID [Concomitant]
  4. LAVOSE [Concomitant]
  5. FLORATOR [Concomitant]
  6. SYMBICORT [Concomitant]

REACTIONS (4)
  - Nausea [None]
  - Fall [None]
  - Adverse drug reaction [None]
  - Lower urinary tract symptoms [None]
